FAERS Safety Report 5585451-4 (Version None)
Quarter: 2008Q1

REPORT INFORMATION
  Report Type: 
  Country: None (occurrence: None)
  Receive Date: 20080104
  Receipt Date: 20080104
  Transmission Date: 20080703
  Serious: Yes (Hospitalization)
  Sender: FDA-Public Use
  Company Number: None

PATIENT
  Sex: Female

DRUGS (2)
  1. IMIPENEM AND CILASTATIN SODIUM [Suspect]
     Dates: start: 20070425, end: 20070525
  2. DARBEPOETIN [Suspect]

REACTIONS (1)
  - PARTIAL SEIZURES [None]
